FAERS Safety Report 5825268-6 (Version None)
Quarter: 2008Q3

REPORT INFORMATION
  Report Type: 
  Country: None (occurrence: None)
  Receive Date: 20080722
  Receipt Date: 20080707
  Transmission Date: 20090109
  Serious: Yes (Other)
  Sender: FDA-Public Use
  Company Number: 2008S1011988

PATIENT
  Age: 56 Year
  Sex: Female

DRUGS (16)
  1. CLOZAPINE [Suspect]
     Indication: SCHIZOAFFECTIVE DISORDER
     Dosage: 325 MG;DAILY;ORAL
     Route: 048
     Dates: start: 20050901, end: 20080601
  2. CLOZAPINE [Suspect]
     Dates: end: 20050928
  3. CLOZAPINE [Suspect]
     Dates: end: 20050928
  4. CLOZAPINE [Suspect]
  5. AZAPROPAZONE [Concomitant]
  6. BENZTROPINE MESYLATE [Concomitant]
  7. SERTRALINE [Concomitant]
  8. METFORMIN HCL [Concomitant]
  9. GLIBENCLAMIDE [Concomitant]
  10. LEVOTHYROXINE SODIUM [Concomitant]
  11. PRAVASTATIN [Concomitant]
  12. ESOMEPRAZOLE MAGNESIUM [Concomitant]
  13. RANITIDINE HCL [Concomitant]
  14. ACETYLSALICYLIC ACID SRT [Concomitant]
  15. VITAMIN TAB [Concomitant]
  16. OTHER MINERAL SUPPLEMENTS [Concomitant]

REACTIONS (1)
  - BREAST CANCER METASTATIC [None]
